FAERS Safety Report 14254791 (Version 4)
Quarter: 2017Q4

REPORT INFORMATION
  Report Type: Spontaneous
  Country: IT (occurrence: IT)
  Receive Date: 20171206
  Receipt Date: 20171212
  Transmission Date: 20180321
  Serious: Yes (Death, Life-Threatening, Hospitalization, Other)
  Sender: FDA-Public Use
  Company Number: IT-TEVA-673962ISR

PATIENT
  Age: 60 Year
  Sex: Male

DRUGS (7)
  1. DOXORUBICIN [Suspect]
     Active Substance: DOXORUBICIN
     Dosage: 25 MG/M2, 42 MG IN SF 100CC IN 30
  2. DOXORUBICIN [Suspect]
     Active Substance: DOXORUBICIN
     Indication: HODGKIN^S DISEASE
     Dosage: 25 MG/M2 DAILY;
  3. BLEOMYCIN [Concomitant]
     Active Substance: BLEOMYCIN SULFATE
     Indication: HODGKIN^S DISEASE
  4. BENDAMUSTINE [Suspect]
     Active Substance: BENDAMUSTINE
     Indication: HODGKIN^S DISEASE
     Route: 042
  5. VINBLASTINE [Concomitant]
     Active Substance: VINBLASTINE
     Indication: HODGKIN^S DISEASE
  6. DACARBAZINE. [Concomitant]
     Active Substance: DACARBAZINE
     Indication: HODGKIN^S DISEASE
  7. DOXORUBICIN [Suspect]
     Active Substance: DOXORUBICIN
     Dosage: 25 MG/M2, 42 MG IN SF 100CC IN 30

REACTIONS (9)
  - Cardiotoxicity [Unknown]
  - Pulmonary oedema [Recovered/Resolved]
  - Left ventricular dysfunction [Recovered/Resolved]
  - Cardiac failure acute [Unknown]
  - Off label use [Unknown]
  - Malignant neoplasm progression [Fatal]
  - Septic shock [Fatal]
  - Off label use [Fatal]
  - Cardiogenic shock [Recovered/Resolved]
